FAERS Safety Report 25708162 (Version 1)
Quarter: 2025Q3

REPORT INFORMATION
  Report Type: Report from Study
  Country: CO (occurrence: CO)
  Receive Date: 20250820
  Receipt Date: 20250820
  Transmission Date: 20251021
  Serious: Yes (Hospitalization)
  Sender: ABBVIE
  Company Number: CO-ABBVIE-6422652

PATIENT
  Age: 58 Year
  Sex: Female
  Weight: 53 kg

DRUGS (2)
  1. RINVOQ [Suspect]
     Active Substance: UPADACITINIB
     Indication: Colitis ulcerative
     Dosage: FORM STRENGTH: 15 MG, 3 TABLETS
     Route: 048
     Dates: start: 20250806
  2. RINVOQ [Suspect]
     Active Substance: UPADACITINIB
     Indication: Colitis ulcerative
     Dosage: FORM STRENGTH: 15 MG, 3 TABLETS
     Route: 048
     Dates: start: 20250716, end: 20250729

REACTIONS (4)
  - Hypotension [Recovering/Resolving]
  - Pneumonia [Recovering/Resolving]
  - Gastrointestinal infection [Recovering/Resolving]
  - Choking [Recovering/Resolving]

NARRATIVE: CASE EVENT DATE: 20250101
